FAERS Safety Report 7656792-1 (Version None)
Quarter: 2011Q3

REPORT INFORMATION
  Report Type: 
  Country: None (occurrence: None)
  Receive Date: 20110804
  Receipt Date: 20110729
  Transmission Date: 20111222
  Serious: Yes (Death, Hospitalization)
  Sender: FDA-Public Use
  Company Number: PHHY2011GB68418

PATIENT
  Age: 78 Year
  Sex: Male

DRUGS (2)
  1. GENTAMICIN [Suspect]
     Indication: ENDOCARDITIS ENTEROCOCCAL
     Dosage: UNK
  2. AMOXICILLIN [Suspect]
     Indication: ENDOCARDITIS ENTEROCOCCAL
     Dosage: UNK

REACTIONS (9)
  - HAEMATURIA [None]
  - DRUG HYPERSENSITIVITY [None]
  - INFLAMMATION [None]
  - HYPERGAMMAGLOBULINAEMIA [None]
  - CARDIOGENIC SHOCK [None]
  - URTICARIA [None]
  - RENAL IMPAIRMENT [None]
  - PROTEINURIA [None]
  - TUBULOINTERSTITIAL NEPHRITIS [None]
